FAERS Safety Report 10487823 (Version 1)
Quarter: 2014Q4

REPORT INFORMATION
  Report Type: Spontaneous
  Country: DE (occurrence: DE)
  Receive Date: 20141001
  Receipt Date: 20141001
  Transmission Date: 20150528
  Serious: Yes (Congenital Anomaly, Other)
  Sender: FDA-Public Use
  Company Number: DE-TEVA-511443GER

PATIENT
  Age: 1 Day
  Sex: Male

DRUGS (5)
  1. METHADONE [Suspect]
     Active Substance: METHADONE HYDROCHLORIDE
     Indication: DRUG WITHDRAWAL MAINTENANCE THERAPY
     Dosage: 35 MILLIGRAM DAILY;
     Route: 064
     Dates: start: 20130403, end: 20140117
  2. TORASEMID [Suspect]
     Active Substance: TORSEMIDE
     Indication: HEART VALVE REPLACEMENT
     Dosage: 10 MILLIGRAM DAILY;
     Route: 064
  3. ASS 100 [Concomitant]
     Active Substance: ASPIRIN
     Indication: HEART VALVE REPLACEMENT
     Dosage: 100 MILLIGRAM DAILY;
     Route: 064
     Dates: start: 20130403, end: 20140117
  4. MIRTAZAPIN [Suspect]
     Active Substance: MIRTAZAPINE
     Indication: DEPRESSION
     Route: 064
  5. SPIROBETA [Suspect]
     Active Substance: SPIRONOLACTONE
     Indication: HEART VALVE REPLACEMENT
     Dosage: 50 MILLIGRAM DAILY;
     Route: 064

REACTIONS (7)
  - Atrial septal defect [Unknown]
  - Foetal exposure during pregnancy [Unknown]
  - Neonatal respiratory distress syndrome [Recovered/Resolved]
  - Patent ductus arteriosus [Recovering/Resolving]
  - Drug withdrawal syndrome neonatal [Recovered/Resolved]
  - Coarctation of the aorta [Recovering/Resolving]
  - Small for dates baby [Unknown]

NARRATIVE: CASE EVENT DATE: 20140117
